FAERS Safety Report 10242302 (Version 1)
Quarter: 2014Q2

REPORT INFORMATION
  Report Type: Spontaneous
  Country: IT (occurrence: IT)
  Receive Date: 20140617
  Receipt Date: 20140617
  Transmission Date: 20141212
  Serious: Yes (Other)
  Sender: FDA-Public Use
  Company Number: IT-TEVA-425335ISR

PATIENT
  Age: 80 Year
  Sex: Female

DRUGS (6)
  1. RAMIPRIL [Suspect]
     Indication: HYPERTENSION
     Dosage: 1 DOSAGE FORMS DAILY;
     Route: 048
     Dates: start: 20130101, end: 20130727
  2. HYDROCHLOROTIAZIDE [Suspect]
     Indication: HYPERTENSION
     Dosage: 1 DOSAGE FORMS DAILY;
     Route: 048
     Dates: start: 20130101, end: 20130727
  3. CARDIOASPIRIN 100 MG [Concomitant]
     Dosage: GASTRORESISTANT TABLETS
  4. BISOPROLOLO FUMARATO [Concomitant]
  5. SIMVASTATINA [Concomitant]
  6. NITROGLICERINA [Concomitant]

REACTIONS (4)
  - Orthostatic hypotension [Recovering/Resolving]
  - Syncope [Recovering/Resolving]
  - Loss of consciousness [Recovering/Resolving]
  - Hypoaesthesia [Recovering/Resolving]
